FAERS Safety Report 17288698 (Version 3)
Quarter: 2020Q3

REPORT INFORMATION
  Report Type: Other
  Country: DE (occurrence: DE)
  Receive Date: 20200120
  Receipt Date: 20200717
  Transmission Date: 20201102
  Serious: Yes (Hospitalization)
  Sender: FDA-Public Use
  Company Number: DE-ROCHE-2519590

PATIENT
  Age: 26 Year
  Sex: Female
  Weight: 50 kg

DRUGS (23)
  1. DEKRISTOL [Concomitant]
     Active Substance: CHOLECALCIFEROL
     Indication: VITAMIN D DEFICIENCY
     Route: 048
     Dates: start: 20160719
  2. AERIUS [Concomitant]
     Route: 048
     Dates: start: 20190115, end: 20190117
  3. PREDNISOLUT [Concomitant]
     Active Substance: PREDNISOLONE
     Indication: PROPHYLAXIS
     Route: 042
     Dates: start: 20180702, end: 20180702
  4. METHYLPREDNISOLONE. [Concomitant]
     Active Substance: METHYLPREDNISOLONE
     Route: 042
     Dates: start: 20191023, end: 20191025
  5. OCRELIZUMAB. [Suspect]
     Active Substance: OCRELIZUMAB
     Route: 042
     Dates: start: 20190116, end: 20200123
  6. BACLOFEN. [Concomitant]
     Active Substance: BACLOFEN
     Route: 048
     Dates: start: 2019
  7. RANITIDINE. [Concomitant]
     Active Substance: RANITIDINE
     Route: 048
     Dates: start: 20180715, end: 20180717
  8. AERIUS [Concomitant]
     Route: 048
     Dates: start: 20180715, end: 20180717
  9. BACLOFEN. [Concomitant]
     Active Substance: BACLOFEN
     Indication: MUSCLE SPASTICITY
     Route: 048
     Dates: start: 2018, end: 2019
  10. PREDNISOLONE. [Concomitant]
     Active Substance: PREDNISOLONE
     Indication: PROPHYLAXIS
     Route: 042
     Dates: start: 20180702, end: 20180702
  11. RANITIDINE. [Concomitant]
     Active Substance: RANITIDINE
     Indication: PROPHYLAXIS
     Route: 048
     Dates: start: 20190115, end: 20190117
  12. SATIVEX [Concomitant]
     Active Substance: NABIXIMOLS
     Indication: PAIN
     Route: 048
     Dates: start: 20160719
  13. MICTONORM [Concomitant]
     Active Substance: PROPIVERINE HYDROCHLORIDE
     Route: 048
  14. CANNABIS [Concomitant]
     Active Substance: CANNABIS SATIVA SUBSP. INDICA TOP
     Indication: MULTIPLE SCLEROSIS
  15. RANITIDINE. [Concomitant]
     Active Substance: RANITIDINE
     Route: 048
     Dates: start: 20180701, end: 20180703
  16. SERTALIN [Concomitant]
     Route: 048
  17. PROMETHAZINE [Concomitant]
     Active Substance: PROMETHAZINE HYDROCHLORIDE
     Route: 048
  18. OCRELIZUMAB. [Suspect]
     Active Substance: OCRELIZUMAB
     Indication: MULTIPLE SCLEROSIS
     Route: 042
     Dates: start: 20180702, end: 20180716
  19. PREDNISOLONE. [Concomitant]
     Active Substance: PREDNISOLONE
     Route: 042
     Dates: start: 20190116, end: 20190116
  20. AERIUS [Concomitant]
     Indication: PROPHYLAXIS
     Route: 048
     Dates: start: 20180701, end: 20180703
  21. BOTOX [Concomitant]
     Active Substance: ONABOTULINUMTOXINA
     Indication: BLADDER DYSFUNCTION
     Route: 043
     Dates: start: 201905, end: 201905
  22. ISOZID [Concomitant]
     Active Substance: ISONIAZID
     Indication: LATENT TUBERCULOSIS
     Route: 048
     Dates: start: 20180514, end: 20190107
  23. ACICLOVIR [Concomitant]
     Active Substance: ACYCLOVIR
     Indication: HERPES ZOSTER
     Route: 048
     Dates: start: 20191017, end: 20191021

REACTIONS (1)
  - Urinary tract infection [Unknown]

NARRATIVE: CASE EVENT DATE: 20191129
